FAERS Safety Report 10184862 (Version 1)
Quarter: 2014Q2

REPORT INFORMATION
  Report Type: Spontaneous
  Country: US (occurrence: None)
  Receive Date: 20140520
  Receipt Date: 20140520
  Transmission Date: 20141212
  Serious: No
  Sender: FDA-Public Use
  Company Number: None

PATIENT
  Age: 53 Year
  Sex: Female
  Weight: 73.48 kg

DRUGS (13)
  1. SUMATRIPTAN [Suspect]
     Indication: MIGRAINE
     Route: 048
     Dates: start: 20140212, end: 20140227
  2. SUMATRIPTAN [Suspect]
     Indication: VOMITING
     Route: 048
     Dates: start: 20140212, end: 20140227
  3. CYMBALTA [Concomitant]
  4. BENADRYL [Concomitant]
  5. ALEVE [Concomitant]
  6. EXCEDRIN [Concomitant]
  7. MINERAL SUPPLEMENTS [Concomitant]
  8. CALCIUM [Concomitant]
  9. VITAMIN K [Concomitant]
  10. ORGANO GOLD BK COFFEE [Concomitant]
  11. NIACIN [Concomitant]
  12. POTASSIUM CHLORIDE [Concomitant]
  13. ORGANO GREEN TEA [Concomitant]

REACTIONS (6)
  - Trismus [None]
  - Swollen tongue [None]
  - Thirst [None]
  - Polydipsia [None]
  - Lip swelling [None]
  - Pain in extremity [None]
